FAERS Safety Report 17529440 (Version 1)
Quarter: 2020Q1

REPORT INFORMATION
  Report Type: Spontaneous
  Country: DE (occurrence: DE)
  Receive Date: 20200311
  Receipt Date: 20200311
  Transmission Date: 20200409
  Serious: Yes (Hospitalization)
  Sender: FDA-Public Use
  Company Number: DE-ABBVIE-20K-062-3313851-00

PATIENT
  Sex: Male

DRUGS (1)
  1. DUODOPA [Suspect]
     Active Substance: CARBIDOPA\LEVODOPA
     Indication: PARKINSON^S DISEASE
     Route: 050
     Dates: start: 20200131, end: 20200205

REACTIONS (3)
  - General physical health deterioration [Unknown]
  - C-reactive protein increased [Unknown]
  - Pneumonia [Unknown]

NARRATIVE: CASE EVENT DATE: 20200205
